FAERS Safety Report 25355690 (Version 1)
Quarter: 2025Q2

REPORT INFORMATION
  Report Type: Spontaneous
  Country: ZA (occurrence: ZA)
  Receive Date: 20250525
  Receipt Date: 20250525
  Transmission Date: 20250716
  Serious: Yes (Death, Hospitalization)
  Sender: CSL BEHRING
  Company Number: ZA-BEH-2025205274

PATIENT
  Age: 71 Year
  Sex: Female

DRUGS (1)
  1. MIRCERA [Suspect]
     Active Substance: METHOXY POLYETHYLENE GLYCOL-EPOETIN BETA
     Indication: Product used for unknown indication
     Route: 065

REACTIONS (12)
  - Seizure [Fatal]
  - Red cell distribution width increased [Unknown]
  - Neutrophil count increased [Unknown]
  - Blood creatine phosphokinase decreased [Unknown]
  - Troponin T increased [Unknown]
  - Transferrin decreased [Unknown]
  - Oxygen saturation increased [Unknown]
  - Serum ferritin increased [Unknown]
  - Red blood cell count decreased [Unknown]
  - Platelet count decreased [Unknown]
  - Haemoglobin decreased [Unknown]
  - Haematocrit decreased [Unknown]

NARRATIVE: CASE EVENT DATE: 20250411
